FAERS Safety Report 7985623-5 (Version None)
Quarter: 2011Q4

REPORT INFORMATION
  Report Type: 
  Country: None (occurrence: None)
  Receive Date: 20111216
  Receipt Date: 20111208
  Transmission Date: 20120403
  Serious: Yes (Hospitalization, Other)
  Sender: FDA-Public Use
  Company Number: US-BRISTOL-MYERS SQUIBB COMPANY-16279895

PATIENT
  Age: 37 Year
  Sex: Male

DRUGS (7)
  1. ZOFRAN [Concomitant]
  2. COMPAZINE [Concomitant]
  3. PHENERGAN [Concomitant]
  4. SPRYCEL [Suspect]
  5. FENTANYL-100 [Concomitant]
  6. PREDNISONE [Concomitant]
  7. OXYCONTIN [Concomitant]

REACTIONS (6)
  - LOSS OF CONSCIOUSNESS [None]
  - VOMITING [None]
  - MALAISE [None]
  - HEPATIC ENZYME INCREASED [None]
  - LUNG DISORDER [None]
  - DIARRHOEA [None]
